FAERS Safety Report 21781041 (Version 1)
Quarter: 2022Q4

REPORT INFORMATION
  Report Type: Other
  Country: FR (occurrence: FR)
  Receive Date: 20221227
  Receipt Date: 20221227
  Transmission Date: 20230112
  Serious: Yes (Hospitalization)
  Sender: FDA-Public Use
  Company Number: None

PATIENT

DRUGS (7)
  1. ACETAMINOPHEN [Suspect]
     Active Substance: ACETAMINOPHEN
     Indication: Arthralgia
     Dosage: 4 GRAM, QD
     Route: 065
     Dates: start: 20221205, end: 20221207
  2. AMOXICILLIN\CLAVULANIC ACID [Suspect]
     Active Substance: AMOXICILLIN\CLAVULANIC ACID
     Indication: Endocarditis
     Dosage: 6 GRAM, QD
     Route: 042
     Dates: start: 20221129, end: 20221207
  3. AMOXICILLIN [Suspect]
     Active Substance: AMOXICILLIN
     Indication: Endocarditis
     Dosage: 6 GRAM, QD
     Route: 042
     Dates: start: 20221129, end: 20221207
  4. ATORVASTATIN CALCIUM TRIHYDRATE [Suspect]
     Active Substance: ATORVASTATIN CALCIUM TRIHYDRATE
     Indication: Acute coronary syndrome
     Dosage: 80 MILLIGRAM, QD
     Route: 048
     Dates: start: 20221129, end: 20221204
  5. GENTAMICIN [Suspect]
     Active Substance: GENTAMICIN
     Indication: Endocarditis
     Dosage: 270 MILLIGRAM, QD
     Route: 042
     Dates: start: 20221129, end: 20221207
  6. LOVENOX [Suspect]
     Active Substance: ENOXAPARIN SODIUM
     Indication: Acute coronary syndrome
     Dosage: 18000 INTERNATIONAL UNIT, QD
     Route: 058
     Dates: start: 20221129, end: 20221204
  7. TIAPRIDE HYDROCHLORIDE [Suspect]
     Active Substance: TIAPRIDE HYDROCHLORIDE
     Indication: Agitation
     Dosage: 10 MILLIGRAM
     Route: 048
     Dates: start: 20221203, end: 20221204

REACTIONS (1)
  - Hepatitis acute [Recovering/Resolving]

NARRATIVE: CASE EVENT DATE: 20221206
